FAERS Safety Report 7215394-1 (Version None)
Quarter: 2011Q1

REPORT INFORMATION
  Report Type: 
  Country: None (occurrence: None)
  Receive Date: 20110104
  Receipt Date: 20110104
  Transmission Date: 20110831
  Serious: Yes (Hospitalization)
  Sender: FDA-Public Use
  Company Number: None

PATIENT
  Sex: Female
  Weight: 58 kg

DRUGS (6)
  1. DAUNORUBICIN [Suspect]
     Dosage: 156 MG
  2. METHOTREXATE [Suspect]
     Dosage: 30 MG
  3. PEG-L-ASPARAGINASE (K-H) [Suspect]
     Dosage: 3875 IU
  4. CYTARABINE [Suspect]
     Dosage: 70 MG
  5. VINCRISTINE SULFATE [Suspect]
     Dosage: 8 MG
  6. METHYLPREDNISOLONE [Suspect]
     Dosage: 2520 MG

REACTIONS (1)
  - ABDOMINAL PAIN [None]
